FAERS Safety Report 25840424 (Version 1)
Quarter: 2025Q3

REPORT INFORMATION
  Report Type: Spontaneous
  Country: CN (occurrence: CN)
  Receive Date: 20250924
  Receipt Date: 20250924
  Transmission Date: 20251020
  Serious: Yes (Other)
  Sender: DAIICHI
  Company Number: CN-DSJP-DS-2025-165820-CN

PATIENT
  Age: 57 Year
  Sex: Female
  Weight: 59 kg

DRUGS (3)
  1. TRASTUZUMAB DERUXTECAN [Suspect]
     Active Substance: TRASTUZUMAB DERUXTECAN
     Indication: Neoplasm
     Dosage: 200 MG, ONCE EVERY 3 WK
     Route: 041
     Dates: start: 20250822, end: 20250822
  2. TRILACICLIB [Concomitant]
     Active Substance: TRILACICLIB
     Indication: Bone marrow disorder
     Route: 041
  3. LU XUE JING [Concomitant]
     Indication: Platelet count decreased
     Route: 048

REACTIONS (1)
  - Myelosuppression [Recovering/Resolving]

NARRATIVE: CASE EVENT DATE: 20250911
